FAERS Safety Report 13190266 (Version 5)
Quarter: 2017Q4

REPORT INFORMATION
  Report Type: Spontaneous
  Country: US (occurrence: US)
  Receive Date: 20170206
  Receipt Date: 20171109
  Transmission Date: 20180320
  Serious: Yes (Hospitalization, Other)
  Sender: FDA-Public Use
  Company Number: US-PFIZER INC-2017050715

PATIENT
  Age: 71 Year
  Sex: Female
  Weight: 58.97 kg

DRUGS (14)
  1. JANUMET [Concomitant]
     Active Substance: METFORMIN HYDROCHLORIDE\SITAGLIPTIN PHOSPHATE
     Dosage: UNK, 2X/DAY [METFORMIN HYDROCHLORIDE: 50 MG/ SITAGLIPTIN PHOSPHATE MONOHYDRATE: 1000 MG]
     Route: 048
  2. VYTORIN [Concomitant]
     Active Substance: EZETIMIBE\SIMVASTATIN
     Indication: BLOOD CHOLESTEROL ABNORMAL
     Dosage: UNK UNK, 1X/DAY (EZETIMIBE: 10 MG; SIMVASTATIN: 20 MG), (ONE PILL)
     Route: 048
  3. METHOTREXATE. [Concomitant]
     Active Substance: METHOTREXATE
     Indication: RHEUMATOID ARTHRITIS
     Dosage: 15 MG, WEEKLY (2.5 MG 6 TABLETS BY MOUTH ONE DAY A WEEK ON WEDNESDAY)
     Route: 048
     Dates: start: 20080924
  4. JANUMET [Concomitant]
     Active Substance: METFORMIN HYDROCHLORIDE\SITAGLIPTIN PHOSPHATE
     Indication: DIABETES MELLITUS
     Dosage: UNK, 2X/DAY [METFORMIN HYDROCHLORIDE: 50 MG/ SITAGLIPTIN PHOSPHATE MONOHYDRATE: 500 MG]
     Route: 048
  5. METOPROLOL. [Concomitant]
     Active Substance: METOPROLOL
     Indication: HYPERTENSION
     Dosage: 25 MG, 2X/DAY
     Route: 048
  6. XELJANZ XR [Suspect]
     Active Substance: TOFACITINIB CITRATE
     Dosage: UNK
  7. ASPIRIN. [Concomitant]
     Active Substance: ASPIRIN
     Dosage: UNK
  8. XELJANZ XR [Suspect]
     Active Substance: TOFACITINIB CITRATE
     Indication: RHEUMATOID ARTHRITIS
     Dosage: 11 MG, 1X/DAY
     Route: 048
     Dates: start: 20160816, end: 20171028
  9. LEVAQUIN [Concomitant]
     Active Substance: LEVOFLOXACIN
     Indication: URINARY TRACT INFECTION
     Dosage: UNK
  10. FOLIC ACID. [Concomitant]
     Active Substance: FOLIC ACID
     Indication: ARTHRITIS
     Dosage: 1 MG, 1X/DAY, (BY MOUTH 6 DAYS A WEEK)
     Route: 048
  11. METFORMIN [Concomitant]
     Active Substance: METFORMIN HYDROCHLORIDE
     Indication: DIABETES MELLITUS
     Dosage: 500 MG, 2X/DAY
     Route: 048
  12. VALSARTAN. [Concomitant]
     Active Substance: VALSARTAN
     Indication: HYPERTENSION
     Dosage: 80 MG, 1X/DAY [Q AM]
  13. VALSARTAN. [Concomitant]
     Active Substance: VALSARTAN
     Dosage: 80 MG, 2X/DAY
     Route: 048
  14. CARDIZEM [Concomitant]
     Active Substance: DILTIAZEM HYDROCHLORIDE
     Indication: HYPERTENSION
     Dosage: UNK

REACTIONS (21)
  - Sinus tachycardia [Recovered/Resolved]
  - Urinary tract infection bacterial [Unknown]
  - Speech disorder [Recovering/Resolving]
  - Dysphagia [Recovering/Resolving]
  - Cough [Unknown]
  - Joint swelling [Unknown]
  - Hip fracture [Recovered/Resolved]
  - Renal cyst [Unknown]
  - Arteriosclerosis coronary artery [Unknown]
  - Asthenia [Recovering/Resolving]
  - Arthralgia [Unknown]
  - Normocytic anaemia [Unknown]
  - Memory impairment [Recovering/Resolving]
  - Fall [Unknown]
  - Cerebrovascular accident [Recovering/Resolving]
  - Limb fracture [Recovered/Resolved]
  - Leukocytosis [Recovering/Resolving]
  - Cerebral infarction [Recovered/Resolved with Sequelae]
  - Upper gastrointestinal haemorrhage [Recovered/Resolved]
  - Hiatus hernia [Unknown]
  - Gait inability [Recovering/Resolving]

NARRATIVE: CASE EVENT DATE: 20170102
